FAERS Safety Report 5466836-3 (Version None)
Quarter: 2007Q3

REPORT INFORMATION
  Report Type: 
  Country: None (occurrence: None)
  Receive Date: 20070920
  Receipt Date: 20070907
  Transmission Date: 20080115
  Serious: Yes (Death)
  Sender: FDA-Public Use
  Company Number: A-CH2007-17518

PATIENT
  Age: 48 Year
  Sex: Female

DRUGS (8)
  1. TRACLEER [Suspect]
     Indication: PULMONARY HYPERTENSION
     Dosage: 125 MG, BID, ORAL; 62.5 MG, BID, ORAL
     Route: 048
     Dates: start: 20040209, end: 20040315
  2. TRACLEER [Suspect]
     Indication: PULMONARY HYPERTENSION
     Dosage: 125 MG, BID, ORAL; 62.5 MG, BID, ORAL
     Route: 048
     Dates: start: 20040316, end: 20070822
  3. CORDARONE [Concomitant]
  4. FLUTICASONE PROPIONATE [Concomitant]
  5. BURNEX (BUMETANIDE) [Concomitant]
  6. ALDACTONE [Concomitant]
  7. XANAX [Concomitant]
  8. MARCUMAR [Concomitant]

REACTIONS (1)
  - PULMONARY HAEMORRHAGE [None]
